FAERS Safety Report 12002643 (Version 1)
Quarter: 2016Q1

REPORT INFORMATION
  Report Type: Report from Study
  Country: US (occurrence: US)
  Receive Date: 20160204
  Receipt Date: 20160204
  Transmission Date: 20160526
  Serious: No
  Sender: FDA-Public Use
  Company Number: US-ABBVIE-15K-163-1430706-00

PATIENT
  Age: 45 Year
  Sex: Female

DRUGS (2)
  1. HUMIRA [Suspect]
     Active Substance: ADALIMUMAB
     Indication: PSORIASIS
     Route: 065
     Dates: start: 20150328
  2. METHOTREXATE [Concomitant]
     Active Substance: METHOTREXATE
     Indication: PRODUCT USED FOR UNKNOWN INDICATION

REACTIONS (6)
  - Rash pruritic [Recovered/Resolved]
  - Injection site pruritus [Recovered/Resolved]
  - Rash vesicular [Recovered/Resolved]
  - Injection site erythema [Recovered/Resolved]
  - Injection site urticaria [Recovered/Resolved]
  - Rash papular [Recovered/Resolved]

NARRATIVE: CASE EVENT DATE: 20150704
